FAERS Safety Report 14364153 (Version 1)
Quarter: 2018Q1

REPORT INFORMATION
  Report Type: Spontaneous
  Country: US (occurrence: US)
  Receive Date: 20180108
  Receipt Date: 20180108
  Transmission Date: 20180509
  Serious: Yes (Other)
  Sender: FDA-Public Use
  Company Number: US-PFIZER INC-2018004517

PATIENT
  Age: 73 Year
  Sex: Female

DRUGS (2)
  1. PROTONIX [Suspect]
     Active Substance: PANTOPRAZOLE SODIUM
     Dosage: UNK, ON NUMEROUS OCCASIONS
     Route: 048
     Dates: start: 2004, end: 2016
  2. PREVACID [Suspect]
     Active Substance: LANSOPRAZOLE
     Dosage: UNK, ON NUMEROUS OCCASIONS
     Route: 048
     Dates: start: 2004, end: 2016

REACTIONS (1)
  - Chronic kidney disease [Unknown]
